FAERS Safety Report 6091495-9 (Version None)
Quarter: 2009Q1

REPORT INFORMATION
  Report Type: 
  Country: None (occurrence: None)
  Receive Date: 20090225
  Receipt Date: 20090213
  Transmission Date: 20090719
  Serious: Yes (Hospitalization)
  Sender: FDA-Public Use
  Company Number: FR-CELGENEUS-056-CCAZA-09011157

PATIENT
  Sex: Male

DRUGS (8)
  1. AZACITIDINE [Suspect]
     Route: 051
     Dates: start: 20080215, end: 20080221
  2. AZACITIDINE [Suspect]
     Route: 051
     Dates: start: 20080314, end: 20080320
  3. AZACITIDINE [Suspect]
     Route: 051
     Dates: start: 20080411, end: 20080417
  4. VESANOID [Suspect]
     Route: 048
     Dates: start: 20080222, end: 20080313
  5. VESANOID [Suspect]
     Route: 048
     Dates: start: 20080321, end: 20080410
  6. VESANOID [Suspect]
     Route: 048
     Dates: start: 20080408, end: 20080509
  7. VESANOID [Suspect]
     Route: 048
     Dates: start: 20080417
  8. DEPAKENE [Concomitant]
     Route: 048
     Dates: start: 20080410, end: 20080509

REACTIONS (1)
  - PARAESTHESIA [None]
